FAERS Safety Report 20133514 (Version 1)
Quarter: 2021Q4

REPORT INFORMATION
  Report Type: Report from Study
  Country: US (occurrence: US)
  Receive Date: 20211201
  Receipt Date: 20211201
  Transmission Date: 20220303
  Serious: Yes (Other)
  Sender: FDA-Public Use
  Company Number: US-SUN PHARMACEUTICAL INDUSTRIES LTD-2020R1-251110

PATIENT
  Age: 54 Year
  Sex: Female
  Weight: 73.469 kg

DRUGS (6)
  1. TILDRAKIZUMAB [Suspect]
     Active Substance: TILDRAKIZUMAB
     Indication: Psoriasis
     Dosage: 100 MILLIGRAM, Q12 WEEKS
     Route: 065
     Dates: start: 20190426, end: 20190827
  2. TILDRAKIZUMAB [Suspect]
     Active Substance: TILDRAKIZUMAB
     Dosage: 100 MILLIGRAM, Q10 WEEKS
     Route: 065
     Dates: start: 20190827
  3. TILDRAKIZUMAB [Suspect]
     Active Substance: TILDRAKIZUMAB
     Dosage: 100MG, Q10WEEKS
     Route: 065
     Dates: start: 20190426, end: 20210607
  4. ESTROGENS [Concomitant]
     Active Substance: ESTROGENS
     Indication: Product used for unknown indication
     Route: 065
  5. VITAMIN D3 [Concomitant]
     Active Substance: CHOLECALCIFEROL
     Indication: Product used for unknown indication
     Route: 065
  6. ASPIRIN [Concomitant]
     Active Substance: ASPIRIN
     Indication: Product used for unknown indication
     Route: 065

REACTIONS (5)
  - Sinusitis [Unknown]
  - Oropharyngeal candidiasis [Unknown]
  - Herpes simplex [Unknown]
  - Spinal meningeal cyst [Unknown]
  - Otitis media [Unknown]

NARRATIVE: CASE EVENT DATE: 20191101
